FAERS Safety Report 7134012-4 (Version None)
Quarter: 2010Q4

REPORT INFORMATION
  Report Type: 
  Country: None (occurrence: None)
  Receive Date: 20101117
  Receipt Date: 20101103
  Transmission Date: 20110411
  Serious: Yes (Hospitalization)
  Sender: FDA-Public Use
  Company Number: 1000017242

PATIENT
  Age: 73 Year
  Sex: Male

DRUGS (10)
  1. NEBIVOLOL HCL [Suspect]
     Indication: ARRHYTHMIA
     Dosage: 5 MG (5 MG, 1 IN 1 D), ORAL
     Route: 048
     Dates: start: 20100718, end: 20100803
  2. ESCITALOPRAM [Suspect]
     Dosage: 10 MG (10 MG, 1 IN 1 D), ORAL
     Route: 048
     Dates: start: 20100718, end: 20100803
  3. SUPRADYN (FERROUS CARBONATE, MAGNESIUM PHOSPHATE MONOBASIC, MANGANESE [Suspect]
     Dosage: ORAL
     Route: 048
     Dates: start: 20100729, end: 20100729
  4. CORDARONE (AMIODARONE HYDROCHLORDIE) [Suspect]
     Indication: ARRHYTHMIA
     Dosage: 100 MG (100 MG, 1 IN 1 D), ORAL
     Route: 048
     Dates: start: 20100718, end: 20100803
  5. LASIX [Suspect]
     Indication: HYPERTENSION
     Dosage: 25 MG (25 MG, 1 IN 1 D), ORAL
     Route: 048
     Dates: start: 20100718, end: 20100803
  6. OMEPRAZOLE [Suspect]
     Dosage: 20 MG (20 MG, 1 IN 1 D), ORAL
     Route: 048
     Dates: start: 20100718, end: 20100803
  7. ENOXAPARIN SODIUM [Suspect]
     Dosage: SUBCUTANEOUS
     Route: 058
     Dates: start: 20100718, end: 20100803
  8. KEPRA (LEVETIRACETAM) [Concomitant]
  9. NORMASE (LACTULOSE) [Concomitant]
  10. DEXAMETHASONE SODIUM PHOSPHATE [Concomitant]

REACTIONS (2)
  - ASTHENIA [None]
  - ERYTHEMA [None]
